FAERS Safety Report 5155035-0 (Version None)
Quarter: 2006Q4

REPORT INFORMATION
  Report Type: 
  Country: None (occurrence: None)
  Receive Date: 20061120
  Receipt Date: 20061120
  Transmission Date: 20070319
  Serious: No
  Sender: FDA-Public Use
  Company Number: None

PATIENT
  Age: 51 Year
  Sex: Male

DRUGS (2)
  1. LOVENOX [Suspect]
     Indication: CARDIAC VALVE DISEASE
     Dosage: 1 MG/KG Q12 SUBC
     Route: 058
     Dates: start: 20041103, end: 20061104
  2. WARFARIN SODIUM [Suspect]
     Indication: CARDIAC VALVE DISEASE
     Dosage: 2.5 THRUN 5 MG OTHER DAY
     Dates: start: 20041103, end: 20061104

REACTIONS (2)
  - POST PROCEDURAL COMPLICATION [None]
  - RETROPERITONEAL HAEMORRHAGE [None]
